FAERS Safety Report 4665467-2 (Version None)
Quarter: 2005Q2

REPORT INFORMATION
  Report Type: 
  Country: None (occurrence: None)
  Receive Date: 20050519
  Receipt Date: 20040409
  Transmission Date: 20051028
  Serious: Yes (Other)
  Sender: FDA-Public Use
  Company Number: US-BRISTOL-MYERS SQUIBB COMPANY-12555793

PATIENT
  Age: 51 Year
  Sex: Female

DRUGS (5)
  1. CYTOXAN [Suspect]
     Indication: LYMPHOMA
     Dates: start: 20040126
  2. ADRIAMYCIN PFS [Suspect]
     Indication: LYMPHOMA
     Dates: start: 20040126
  3. ONCOVIN [Suspect]
     Indication: LYMPHOMA
     Dates: start: 20040126
  4. RITUXAN [Suspect]
     Indication: LYMPHOMA
     Dates: start: 20040126
  5. CLOZAPINE [Suspect]
     Indication: SCHIZOPHRENIA
     Dosage: DOSE = 800-350 MG
     Route: 048
     Dates: start: 20020201

REACTIONS (1)
  - AGRANULOCYTOSIS [None]
